FAERS Safety Report 10255054 (Version 2)
Quarter: 2014Q3

REPORT INFORMATION
  Report Type: Spontaneous
  Country: IT (occurrence: IT)
  Receive Date: 20140624
  Receipt Date: 20140814
  Transmission Date: 20150326
  Serious: Yes (Life-Threatening)
  Sender: FDA-Public Use
  Company Number: IT-TEVA-489044ISR

PATIENT
  Age: 54 Year
  Sex: Female
  Weight: 60 kg

DRUGS (1)
  1. CEFAZOLINA TEVA [Suspect]
     Active Substance: CEFAZOLIN SODIUM
     Indication: ANTIBIOTIC PROPHYLAXIS
     Dosage: 2 GRAM DAILY;
     Route: 042
     Dates: start: 20140513, end: 20140513

REACTIONS (6)
  - Erythema [Recovered/Resolved]
  - Sopor [Recovered/Resolved]
  - Hypotension [Recovered/Resolved]
  - Dyspnoea [Recovered/Resolved]
  - Burning sensation [Recovered/Resolved]
  - Tachycardia [Recovered/Resolved]

NARRATIVE: CASE EVENT DATE: 20140513
